FAERS Safety Report 9792068 (Version 1)
Quarter: 2013Q4

REPORT INFORMATION
  Report Type: Spontaneous
  Country: US (occurrence: None)
  Receive Date: 20131230
  Receipt Date: 20131230
  Transmission Date: 20140711
  Serious: Yes (Hospitalization)
  Sender: FDA-Public Use
  Company Number: HA13-458-AE

PATIENT
  Age: 61 Year
  Sex: Female

DRUGS (9)
  1. IBUPROFEN TABLETS [Suspect]
     Indication: SPINAL COLUMN STENOSIS
     Route: 048
     Dates: start: 20100325, end: 20110709
  2. STUDY DRUG [Concomitant]
  3. FLUTICASONE PROPIONATE [Concomitant]
  4. BECLOMETASONE DIPROPIONATE [Concomitant]
  5. OXYMORPHONE HYDROCHLORIDE [Concomitant]
  6. OXYCODONE HYDROCHLORIDE [Concomitant]
  7. PARACETAMOL (PERCOCET) [Concomitant]
  8. TIOTROPIUM BROMIDE (SPIRIVA) [Concomitant]
  9. NEXIUM [Concomitant]

REACTIONS (3)
  - Renal failure acute [None]
  - Decreased appetite [None]
  - Mental status changes [None]
